FAERS Safety Report 4939711-8 (Version None)
Quarter: 2006Q1

REPORT INFORMATION
  Report Type: 
  Country: None (occurrence: None)
  Receive Date: 20060310
  Receipt Date: 20050826
  Transmission Date: 20060701
  Serious: Yes (Hospitalization, Other)
  Sender: FDA-Public Use
  Company Number: US-MERCK-0508USA04406

PATIENT
  Age: 81 Year
  Sex: Female
  Weight: 73 kg

DRUGS (4)
  1. VIOXX [Suspect]
     Indication: ARTHRITIS
     Route: 048
     Dates: start: 20000901, end: 20030704
  2. VIOXX [Suspect]
     Route: 048
     Dates: start: 20000101, end: 20010101
  3. VIOXX [Suspect]
     Route: 048
     Dates: start: 20010101, end: 20030101
  4. VIOXX [Suspect]
     Route: 048
     Dates: start: 20030101

REACTIONS (6)
  - BLOOD COUNT ABNORMAL [None]
  - BRADYCARDIA [None]
  - EYE DISORDER [None]
  - MYOCARDIAL INFARCTION [None]
  - PULMONARY OEDEMA [None]
  - RENAL FAILURE [None]
